FAERS Safety Report 4748510-1 (Version None)
Quarter: 2005Q3

REPORT INFORMATION
  Report Type: 
  Country: None (occurrence: None)
  Receive Date: 20050818
  Receipt Date: 20050818
  Transmission Date: 20060218
  Serious: Yes (Hospitalization)
  Sender: FDA-Public Use
  Company Number: None

PATIENT
  Age: 85 Year
  Sex: Male
  Weight: 78 kg

DRUGS (10)
  1. WARFARIN    5MG     DUPONT [Suspect]
     Indication: DEEP VEIN THROMBOSIS
     Dosage: 7.5MG/5MG   TU+FR/REST OF WEEK   ORAL
     Route: 048
     Dates: start: 20041213, end: 20050817
  2. WARFARIN    5MG     DUPONT [Suspect]
     Indication: PERIPHERAL VASCULAR DISORDER
     Dosage: 7.5MG/5MG   TU+FR/REST OF WEEK   ORAL
     Route: 048
     Dates: start: 20041213, end: 20050817
  3. WARFARIN    5MG     DUPONT [Suspect]
     Indication: VASCULAR GRAFT OCCLUSION
     Dosage: 7.5MG/5MG   TU+FR/REST OF WEEK   ORAL
     Route: 048
     Dates: start: 20041213, end: 20050817
  4. ALLOPURINOL [Concomitant]
  5. ARTIFICIAL TEARS POLYVINYL ALCOHOL [Concomitant]
  6. FELODIPINE [Concomitant]
  7. LISINOPRIL [Concomitant]
  8. OMEPRAZOLE [Concomitant]
  9. SIMVASTATIN [Concomitant]
  10. TOPIRAMATE [Concomitant]

REACTIONS (2)
  - PAIN IN EXTREMITY [None]
  - VASCULAR GRAFT OCCLUSION [None]
